FAERS Safety Report 9227900 (Version 4)
Quarter: 2013Q2

REPORT INFORMATION
  Report Type: Spontaneous
  Country: JP (occurrence: None)
  Receive Date: 20130410
  Receipt Date: 20130517
  Transmission Date: 20140414
  Serious: Yes (Hospitalization)
  Sender: FDA-Public Use
  Company Number: TCI2013A01150

PATIENT
  Age: 79 Year
  Sex: Female

DRUGS (2)
  1. TAKEPRON [Suspect]
     Indication: PROPHYLAXIS AGAINST GASTROINTESTINAL ULCER
     Route: 048
     Dates: start: 20111207, end: 20121024
  2. CLINORIL (SULINDAC) [Concomitant]

REACTIONS (5)
  - Osteoporosis [None]
  - Condition aggravated [None]
  - Dyspepsia [None]
  - Back pain [None]
  - Gait disturbance [None]
